FAERS Safety Report 15149991 (Version 1)
Quarter: 2018Q3

REPORT INFORMATION
  Report Type: Report from Study
  Country: ES (occurrence: ES)
  Receive Date: 20180716
  Receipt Date: 20180716
  Transmission Date: 20181010
  Serious: Yes (Hospitalization)
  Sender: FDA-Public Use
  Company Number: ES-TEVA-2018-ES-926730

PATIENT
  Age: 75 Year
  Sex: Male

DRUGS (2)
  1. BISOPROLOL (2328A) [Suspect]
     Active Substance: BISOPROLOL
     Indication: ANGINA PECTORIS
     Dosage: 5 MILLIGRAM DAILY;
     Route: 048
     Dates: start: 2016, end: 20161221
  2. TIMOLOL (1158A) [Interacting]
     Active Substance: TIMOLOL
     Route: 065
     Dates: start: 2016

REACTIONS (3)
  - Nodal rhythm [Recovered/Resolved]
  - Drug interaction [Unknown]
  - Bradycardia [Recovered/Resolved]

NARRATIVE: CASE EVENT DATE: 20161221
